FAERS Safety Report 21842103 (Version 1)
Quarter: 2023Q1

REPORT INFORMATION
  Report Type: Spontaneous
  Country: US (occurrence: US)
  Receive Date: 20230110
  Receipt Date: 20230110
  Transmission Date: 20230417
  Serious: Yes (Death)
  Sender: FDA-Public Use
  Company Number: US-CELLTRION INC.-2023US000346

PATIENT

DRUGS (6)
  1. RITUXIMAB [Suspect]
     Active Substance: RITUXIMAB
     Indication: Epstein-Barr virus associated lymphoproliferative disorder
     Dosage: UNK
  2. CYCLOPHOSPHAMIDE [Suspect]
     Active Substance: CYCLOPHOSPHAMIDE
     Indication: Epstein-Barr virus associated lymphoproliferative disorder
     Dosage: UNK
  3. CYCLOPHOSPHAMIDE [Suspect]
     Active Substance: CYCLOPHOSPHAMIDE
     Indication: Epstein-Barr virus associated lymphoproliferative disorder
  4. PREDNISOLONE [Suspect]
     Active Substance: PREDNISOLONE
  5. VINCRISTINE [Suspect]
     Active Substance: VINCRISTINE
  6. PREDNISONE [Suspect]
     Active Substance: PREDNISONE

REACTIONS (3)
  - Disease progression [Fatal]
  - Disease recurrence [Unknown]
  - Off label use [Unknown]
